FAERS Safety Report 9778927 (Version 2)
Quarter: 2014Q2

REPORT INFORMATION
  Report Type: Report from Study
  Country: US (occurrence: US)
  Receive Date: 20131223
  Receipt Date: 20140618
  Transmission Date: 20141212
  Serious: Yes (Other)
  Sender: FDA-Public Use
  Company Number: US-US-EMD SERONO, INC.-7258981

PATIENT
  Age: 58 Year
  Sex: Female

DRUGS (3)
  1. REBIF [Suspect]
     Indication: MULTIPLE SCLEROSIS
     Route: 058
     Dates: start: 20090605, end: 201311
  2. REBIF [Suspect]
     Dates: start: 201312
  3. REBIF [Suspect]
     Route: 058

REACTIONS (4)
  - Retinal detachment [Unknown]
  - Back pain [Not Recovered/Not Resolved]
  - Fatigue [Recovered/Resolved]
  - Injection site erythema [Not Recovered/Not Resolved]
